FAERS Safety Report 18460588 (Version 1)
Quarter: 2020Q4

REPORT INFORMATION
  Report Type: Spontaneous
  Country: JP (occurrence: JP)
  Receive Date: 20201104
  Receipt Date: 20201104
  Transmission Date: 20210114
  Serious: Yes (Other)
  Sender: FDA-Public Use
  Company Number: JP-SUN PHARMACEUTICAL INDUSTRIES LTD-2020RR-265943

PATIENT
  Age: 82 Year
  Sex: Female

DRUGS (1)
  1. ASPIRIN. [Suspect]
     Active Substance: ASPIRIN
     Indication: INFARCTION
     Dosage: UNKNOWN
     Route: 065

REACTIONS (2)
  - Lower gastrointestinal haemorrhage [Recovered/Resolved]
  - Ulcer [Recovered/Resolved]
